FAERS Safety Report 15898336 (Version 1)
Quarter: 2019Q1

REPORT INFORMATION
  Report Type: Spontaneous
  Country: FR (occurrence: FR)
  Receive Date: 20190201
  Receipt Date: 20190201
  Transmission Date: 20190417
  Serious: Yes (Hospitalization, Other)
  Sender: FDA-Public Use
  Company Number: FR-AUROBINDO-AUR-APL-2019-004242

PATIENT
  Age: 57 Year
  Sex: Male
  Weight: 70 kg

DRUGS (3)
  1. CARBOPLATIN. [Suspect]
     Active Substance: CARBOPLATIN
     Indication: OROPHARYNGEAL SQUAMOUS CELL CARCINOMA
     Dosage: 640 MILLIGRAM, IN TOTAL
     Route: 042
     Dates: start: 20181128, end: 20181128
  2. ERBITUX [Suspect]
     Active Substance: CETUXIMAB
     Indication: OROPHARYNGEAL SQUAMOUS CELL CARCINOMA
     Dosage: 755 MILLIGRAM, IN TOTAL
     Route: 042
     Dates: start: 20181128, end: 20181202
  3. FLUOROURACIL. [Suspect]
     Active Substance: FLUOROURACIL
     Indication: OROPHARYNGEAL SQUAMOUS CELL CARCINOMA
     Dosage: 7550 MILLIGRAM, ONCE A DAY
     Route: 042
     Dates: start: 20181128, end: 20181128

REACTIONS (1)
  - Encephalopathy [Recovered/Resolved]

NARRATIVE: CASE EVENT DATE: 20181201
